FAERS Safety Report 22043410 (Version 1)
Quarter: 2023Q1

REPORT INFORMATION
  Report Type: Spontaneous
  Country: CN (occurrence: None)
  Receive Date: 20230228
  Receipt Date: 20230228
  Transmission Date: 20230418
  Serious: Yes (Other)
  Sender: FDA-Public Use
  Company Number: CN-ROCHE-3292409

PATIENT
  Age: 42 Year
  Sex: Male

DRUGS (4)
  1. MABTHERA [Suspect]
     Active Substance: RITUXIMAB
     Indication: Glomerulonephritis membranous
     Route: 065
     Dates: start: 20210715
  2. MABTHERA [Suspect]
     Active Substance: RITUXIMAB
     Indication: Nephrotic syndrome
     Route: 065
     Dates: start: 20210816
  3. PREDNISONE [Concomitant]
     Active Substance: PREDNISONE
     Dosage: PER DAY
     Route: 048
  4. PREDNISONE [Concomitant]
     Active Substance: PREDNISONE
     Dosage: PER DAY
     Route: 048

REACTIONS (11)
  - Chest discomfort [Recovered/Resolved]
  - Wheezing [Recovered/Resolved]
  - Dyspnoea [Recovered/Resolved]
  - Respiratory failure [Unknown]
  - Acute lung injury [Recovering/Resolving]
  - Dizziness [Unknown]
  - Drug-induced liver injury [Unknown]
  - Pneumonia [Unknown]
  - Interstitial lung disease [Unknown]
  - Acute pulmonary oedema [Unknown]
  - Pulmonary embolism [Unknown]
